FAERS Safety Report 10220487 (Version 3)
Quarter: 2014Q3

REPORT INFORMATION
  Report Type: Spontaneous
  Country: US (occurrence: US)
  Receive Date: 20140606
  Receipt Date: 20140819
  Transmission Date: 20150326
  Serious: Yes (Other)
  Sender: FDA-Public Use
  Company Number: US-AMGEN-USASP2014041123

PATIENT
  Age: 25 Year
  Sex: Male

DRUGS (2)
  1. EPOGEN [Suspect]
     Active Substance: ERYTHROPOIETIN
     Indication: PRODUCT USED FOR UNKNOWN INDICATION
     Dosage: 25000 UNIT, 2 TIMES/WK
     Route: 058
     Dates: start: 20120407
  2. ARANESP [Suspect]
     Active Substance: DARBEPOETIN ALFA
     Indication: PRODUCT USED FOR UNKNOWN INDICATION
     Dosage: UNK
     Route: 065

REACTIONS (13)
  - Nephrotic syndrome [Unknown]
  - Blood pressure abnormal [Unknown]
  - Hypertension [Unknown]
  - Blood iron abnormal [Unknown]
  - Hyperparathyroidism secondary [Unknown]
  - Anaemia [Unknown]
  - Renal failure [Unknown]
  - Drug ineffective [Unknown]
  - Fatigue [Unknown]
  - Condition aggravated [Unknown]
  - Nephropathy [Unknown]
  - Thrombocytopenia [Unknown]
  - Restless legs syndrome [Unknown]
